FAERS Safety Report 13168412 (Version 1)
Quarter: 2017Q1

REPORT INFORMATION
  Report Type: Report from Study
  Country: None (occurrence: BR)
  Receive Date: 20170131
  Receipt Date: 20170131
  Transmission Date: 20170428
  Serious: Yes (Other)
  Sender: FDA-Public Use
  Company Number: BR-ABBVIE-17K-020-1851823-00

PATIENT
  Sex: Female

DRUGS (1)
  1. HUMIRA [Suspect]
     Active Substance: ADALIMUMAB
     Indication: PRODUCT USED FOR UNKNOWN INDICATION
     Route: 058
     Dates: end: 201701

REACTIONS (7)
  - Pain in extremity [Unknown]
  - Skin disorder [Unknown]
  - Venous thrombosis [Unknown]
  - Skin injury [Unknown]
  - Peripheral swelling [Unknown]
  - Pruritus [Unknown]
  - Skin induration [Recovering/Resolving]
